FAERS Safety Report 4690947-3 (Version None)
Quarter: 2005Q2

REPORT INFORMATION
  Report Type: 
  Country: None (occurrence: None)
  Receive Date: 20050610
  Receipt Date: 20050531
  Transmission Date: 20051028
  Serious: Yes (Other)
  Sender: FDA-Public Use
  Company Number: HQWYE071901JUN05

PATIENT
  Sex: Female

DRUGS (1)
  1. ROBAXISAL (METHOCARBAMOL/ASPIRIN, CAPLET) [Suspect]
     Indication: PAIN
     Dosage: AS NEEDED ORAL
     Route: 048

REACTIONS (6)
  - ACQUIRED CLAW TOE [None]
  - EXTRAPYRAMIDAL DISORDER [None]
  - MALAISE [None]
  - MUSCLE RIGIDITY [None]
  - PAIN [None]
  - WHEELCHAIR USER [None]
